FAERS Safety Report 16441709 (Version 2)
Quarter: 2020Q2

REPORT INFORMATION
  Report Type: Report from Study
  Country: US (occurrence: US)
  Receive Date: 20190617
  Receipt Date: 20200604
  Transmission Date: 20200713
  Serious: No
  Sender: FDA-Public Use
  Company Number: US-US WORLDMEDS, LLC-USW201805-000815

PATIENT
  Age: 68 Year
  Sex: Male
  Weight: 130.63 kg

DRUGS (17)
  1. APOKYN [Suspect]
     Active Substance: APOMORPHINE HYDROCHLORIDE
     Indication: PARKINSON^S DISEASE
     Route: 058
     Dates: start: 20170501, end: 20180515
  2. OMEPRAZOLE. [Concomitant]
     Active Substance: OMEPRAZOLE
  3. CARB/LEVO [Concomitant]
     Active Substance: CARBIDOPA\LEVODOPA
  4. APOKYN [Suspect]
     Active Substance: APOMORPHINE HYDROCHLORIDE
     Route: 058
     Dates: start: 20160331
  5. FUROSEMIDE. [Concomitant]
     Active Substance: FUROSEMIDE
     Indication: OEDEMA
  6. FLUTICASONE. [Concomitant]
     Active Substance: FLUTICASONE
  7. AMLODIPINE [Concomitant]
     Active Substance: AMLODIPINE BESYLATE
  8. METOPROLOL. [Concomitant]
     Active Substance: METOPROLOL
  9. ASA [Concomitant]
     Active Substance: ASPIRIN
  10. LEVOCETIRIZINE HCL [Concomitant]
  11. PROAIR HFA [Concomitant]
     Active Substance: ALBUTEROL SULFATE
  12. BREO ELLIPTA [Concomitant]
     Active Substance: FLUTICASONE FUROATE\VILANTEROL TRIFENATATE
  13. CARBIDOPA/LEVODOPA [Concomitant]
     Active Substance: CARBIDOPA\LEVODOPA
  14. CHLORTHALIDONE. [Concomitant]
     Active Substance: CHLORTHALIDONE
  15. FINASTERIDE. [Concomitant]
     Active Substance: FINASTERIDE
     Indication: CONTINUOUS POSITIVE AIRWAY PRESSURE
  16. PRAMIPEXOLE. [Concomitant]
     Active Substance: PRAMIPEXOLE
  17. TAMSULOSIN [Concomitant]
     Active Substance: TAMSULOSIN

REACTIONS (5)
  - Blood pressure increased [Recovered/Resolved]
  - Somnolence [Recovered/Resolved]
  - Dyspnoea [Recovered/Resolved]
  - Hallucination [Recovered/Resolved]
  - Headache [Recovered/Resolved]

NARRATIVE: CASE EVENT DATE: 20190228
